FAERS Safety Report 18238469 (Version 2)
Quarter: 2020Q3

REPORT INFORMATION
  Report Type: Spontaneous
  Country: US (occurrence: US)
  Receive Date: 20200907
  Receipt Date: 20200908
  Transmission Date: 20201103
  Serious: No
  Sender: FDA-Public Use
  Company Number: US-PFIZER INC-2020343189

PATIENT
  Age: 64 Year
  Sex: Female

DRUGS (1)
  1. IBRANCE [Suspect]
     Active Substance: PALBOCICLIB
     Dosage: 100 MG, CYCLIC (1 TABLET QD (EVERY DAY) FOR 21 DAYS ON AND 7 DAYS OFF)
     Dates: start: 20200710, end: 2020

REACTIONS (6)
  - Diarrhoea [Recovering/Resolving]
  - Rhinorrhoea [Recovering/Resolving]
  - Weight decreased [Recovering/Resolving]
  - Quality of life decreased [Unknown]
  - Dehydration [Recovering/Resolving]
  - Vomiting [Recovering/Resolving]

NARRATIVE: CASE EVENT DATE: 2020
